FAERS Safety Report 6471037-6 (Version None)
Quarter: 2009Q4

REPORT INFORMATION
  Report Type: 
  Country: None (occurrence: None)
  Receive Date: 20091203
  Receipt Date: 20091118
  Transmission Date: 20100525
  Serious: Yes (Death, Hospitalization, Disabling)
  Sender: FDA-Public Use
  Company Number: FR-GENENTECH-293828

PATIENT
  Sex: Female

DRUGS (18)
  1. BLINDED BEVACIZUMAB [Suspect]
     Indication: GLIOBLASTOMA
     Dosage: UNK
     Route: 042
     Dates: start: 20090813, end: 20091021
  2. BLINDED PLACEBO [Suspect]
     Indication: GLIOBLASTOMA
     Dosage: UNK
     Route: 042
     Dates: start: 20090813, end: 20091021
  3. BLINDED RADIOTHERAPY [Suspect]
     Indication: GLIOBLASTOMA
     Dosage: UNK
     Route: 042
     Dates: start: 20090813, end: 20091021
  4. BLINDED TEMOZOLOMIDE [Suspect]
     Indication: GLIOBLASTOMA
     Dosage: UNK
     Route: 042
     Dates: start: 20090813, end: 20091021
  5. TEMOZOLOMIDE [Suspect]
     Indication: GLIOBLASTOMA
     Dosage: 120 MG, UNK
     Route: 048
     Dates: start: 20090813, end: 20091028
  6. L-THYROXIN [Concomitant]
     Indication: DRUG USE FOR UNKNOWN INDICATION
     Dosage: UNK
     Dates: start: 20091030
  7. ZOLPIDEM [Concomitant]
     Indication: DRUG USE FOR UNKNOWN INDICATION
     Dosage: UNK
  8. METHYLPREDNISOLONE [Concomitant]
     Indication: DRUG USE FOR UNKNOWN INDICATION
     Dosage: UNK
     Dates: start: 20091028
  9. PRIMPERAN TAB [Concomitant]
     Indication: DRUG USE FOR UNKNOWN INDICATION
     Dosage: UNK
     Dates: start: 20091016
  10. ESOMEPRAZOLE [Concomitant]
     Indication: DRUG USE FOR UNKNOWN INDICATION
     Dosage: UNK
     Dates: start: 20091013
  11. POTASSIUM CHLORIDE [Concomitant]
     Indication: DRUG USE FOR UNKNOWN INDICATION
     Dosage: UNK
     Dates: start: 20091019
  12. MICONAZOLE [Concomitant]
     Indication: DRUG USE FOR UNKNOWN INDICATION
     Dosage: UNK
     Dates: start: 20091022, end: 20091104
  13. FILGRASTIM [Concomitant]
     Indication: DRUG USE FOR UNKNOWN INDICATION
     Dosage: UNK
     Dates: start: 20091023
  14. ENOXAPARIN SODIUM [Concomitant]
     Indication: DRUG USE FOR UNKNOWN INDICATION
     Dosage: UNK
     Dates: start: 20091016
  15. AMINO ACIDS [Concomitant]
     Indication: DRUG USE FOR UNKNOWN INDICATION
     Dosage: UNK
     Dates: start: 20091020, end: 20091101
  16. CARBOHYDRATES [Concomitant]
     Indication: DRUG USE FOR UNKNOWN INDICATION
     Dosage: UNK
     Dates: start: 20091020, end: 20091101
  17. ELECTROLYTES [Concomitant]
     Indication: DRUG USE FOR UNKNOWN INDICATION
     Dosage: UNK
     Dates: start: 20091020, end: 20091101
  18. LIPIDS [Concomitant]
     Indication: DRUG USE FOR UNKNOWN INDICATION
     Dosage: UNK
     Dates: start: 20091020, end: 20091101

REACTIONS (1)
  - BACTERAEMIA [None]
